FAERS Safety Report 24235205 (Version 1)
Quarter: 2024Q3

REPORT INFORMATION
  Report Type: Report from Study
  Country: AU (occurrence: AU)
  Receive Date: 20240821
  Receipt Date: 20240821
  Transmission Date: 20241017
  Serious: Yes (Other)
  Sender: GILEAD
  Company Number: AU-GILEAD-2024-0684535

PATIENT

DRUGS (1)
  1. AXICABTAGENE CILOLEUCEL [Suspect]
     Active Substance: AXICABTAGENE CILOLEUCEL
     Indication: Lymphoma
     Route: 065

REACTIONS (4)
  - Micrococcal sepsis [Unknown]
  - Cytomegalovirus viraemia [Unknown]
  - Human herpesvirus 6 viraemia [Unknown]
  - Cytokine release syndrome [Unknown]
